FAERS Safety Report 8153093-2 (Version None)
Quarter: 2012Q1

REPORT INFORMATION
  Report Type: 
  Country: None (occurrence: None)
  Receive Date: 20120221
  Receipt Date: 20120209
  Transmission Date: 20120608
  Serious: No
  Sender: FDA-Public Use
  Company Number: US-JNJFOC-20120201128

PATIENT
  Age: 3 Decade
  Sex: Female

DRUGS (1)
  1. INVEGA SUSTENNA [Suspect]
     Indication: ACCIDENTAL EXPOSURE
     Route: 030

REACTIONS (2)
  - ACCIDENTAL EXPOSURE [None]
  - DEVICE LEAKAGE [None]
